FAERS Safety Report 17474767 (Version 1)
Quarter: 2020Q1

REPORT INFORMATION
  Report Type: Report from Study
  Country: IE (occurrence: IE)
  Receive Date: 20200228
  Receipt Date: 20200228
  Transmission Date: 20200409
  Serious: Yes (Other)
  Sender: FDA-Public Use
  Company Number: IE-JNJFOC-20190811942

PATIENT
  Sex: Female

DRUGS (10)
  1. NU-SEALS ASPIRIN [Concomitant]
     Active Substance: ASPIRIN
     Route: 050
  2. STELARA [Suspect]
     Active Substance: USTEKINUMAB
     Indication: PSORIASIS
     Route: 058
     Dates: start: 20170612, end: 20190515
  3. ROSUVASTATIN. [Concomitant]
     Active Substance: ROSUVASTATIN
     Route: 050
  4. FRISIUM [Concomitant]
     Active Substance: CLOBAZAM
     Route: 050
  5. SERETIDE [Concomitant]
     Active Substance: FLUTICASONE PROPIONATE\SALMETEROL XINAFOATE
     Route: 050
  6. VALSARTAN. [Concomitant]
     Active Substance: VALSARTAN
     Route: 050
  7. ZANIDIP [Concomitant]
     Active Substance: LERCANIDIPINE HYDROCHLORIDE
     Route: 050
  8. AMITRIPTYLINE [Concomitant]
     Active Substance: AMITRIPTYLINE
     Route: 050
  9. ZOMEL                              /01159001/ [Concomitant]
     Route: 050
  10. NEUROFENAC                         /00642201/ [Concomitant]
     Route: 050

REACTIONS (1)
  - Lower respiratory tract infection [Unknown]
